FAERS Safety Report 6829632-8 (Version None)
Quarter: 2010Q3

REPORT INFORMATION
  Report Type: 
  Country: None (occurrence: None)
  Receive Date: 20100709
  Receipt Date: 20070425
  Transmission Date: 20110219
  Serious: No
  Sender: FDA-Public Use
  Company Number: US-PFIZER INC-2007003253

PATIENT
  Sex: Male
  Weight: 80.29 kg

DRUGS (7)
  1. CHANTIX [Suspect]
     Dates: start: 20070102
  2. HYTRIN [Concomitant]
  3. LIPITOR [Concomitant]
  4. PRILOSEC [Concomitant]
  5. ONE-A-DAY [Concomitant]
  6. ACETYLSALICYLIC ACID [Concomitant]
  7. NASACORT [Concomitant]

REACTIONS (9)
  - ABDOMINAL DISCOMFORT [None]
  - ABDOMINAL PAIN UPPER [None]
  - BALANCE DISORDER [None]
  - ERUCTATION [None]
  - FEELING DRUNK [None]
  - FLATULENCE [None]
  - NAUSEA [None]
  - NERVOUSNESS [None]
  - TREMOR [None]
